FAERS Safety Report 18855752 (Version 1)
Quarter: 2021Q1

REPORT INFORMATION
  Report Type: Report from Study
  Country: US (occurrence: US)
  Receive Date: 20210205
  Receipt Date: 20210205
  Transmission Date: 20210420
  Serious: Yes (Hospitalization)
  Sender: FDA-Public Use
  Company Number: US-EXELIXIS-XL18420036229

PATIENT

DRUGS (2)
  1. XL184 [Suspect]
     Active Substance: CABOZANTINIB
     Indication: COLORECTAL CANCER
     Dosage: 40 MG, QD
     Route: 048
     Dates: start: 20201022
  2. DURVALUMAB. [Suspect]
     Active Substance: DURVALUMAB
     Indication: COLORECTAL CANCER
     Dosage: 1500 MG, Q4WEEKS
     Route: 042
     Dates: start: 20201022

REACTIONS (5)
  - Pleural effusion [Unknown]
  - Dyspnoea [Recovered/Resolved]
  - Nausea [Recovering/Resolving]
  - Nephrotic syndrome [Unknown]
  - Vomiting [Recovering/Resolving]
